FAERS Safety Report 5832539-6 (Version None)
Quarter: 2008Q3

REPORT INFORMATION
  Report Type: 
  Country: None (occurrence: None)
  Receive Date: 20080804
  Receipt Date: 20080728
  Transmission Date: 20090109
  Serious: Yes (Other)
  Sender: FDA-Public Use
  Company Number: US-JNJCH-2008019898

PATIENT
  Age: 20 Year
  Sex: Female
  Weight: 54.4 kg

DRUGS (4)
  1. BENADRYL [Suspect]
     Indication: ARTHROPOD BITE
     Dosage: TEXT:UNSPECIFIED
     Route: 065
  2. BENADRYL [Suspect]
     Indication: ARTHROPOD BITE
     Dosage: TEXT:UNSPECIFIED
     Route: 065
  3. BENADRYL [Suspect]
     Dosage: TEXT:UNSPECIFIED
     Route: 065
  4. BENADRYL [Suspect]

REACTIONS (2)
  - OVERDOSE [None]
  - SYNCOPE [None]
